FAERS Safety Report 17342478 (Version 1)
Quarter: 2020Q1

REPORT INFORMATION
  Report Type: Spontaneous
  Country: US (occurrence: US)
  Receive Date: 20200129
  Receipt Date: 20200129
  Transmission Date: 20200409
  Serious: No
  Sender: FDA-Public Use
  Company Number: US-ALLERGAN-1926337US

PATIENT
  Sex: Female

DRUGS (5)
  1. BOTOX [Suspect]
     Active Substance: ONABOTULINUMTOXINA
     Indication: DYSTONIA
     Dosage: 2 UNITS, SINGLE
     Route: 030
  2. BOTOX [Suspect]
     Active Substance: ONABOTULINUMTOXINA
     Dosage: 2 UNITS (1 UNIT EACH SIDE), SINGLE
     Route: 030
  3. BOTOX [Suspect]
     Active Substance: ONABOTULINUMTOXINA
     Dosage: 2 UNITS (1 UNIT EACH SIDE), SINGLE
     Route: 030
  4. BOTOX [Suspect]
     Active Substance: ONABOTULINUMTOXINA
     Dosage: 8 UNITS, SINGLE
     Route: 030
  5. BOTOX [Suspect]
     Active Substance: ONABOTULINUMTOXINA
     Dosage: 2 UNITS (1 UNIT EACH SIDE), SINGLE
     Route: 030

REACTIONS (3)
  - Off label use [Unknown]
  - Muscle twitching [Unknown]
  - Therapeutic product ineffective for unapproved indication [Unknown]
